FAERS Safety Report 21466067 (Version 2)
Quarter: 2022Q4

REPORT INFORMATION
  Report Type: Spontaneous
  Country: US (occurrence: US)
  Receive Date: 20221017
  Receipt Date: 20221024
  Transmission Date: 20230113
  Serious: Yes (Death, Other)
  Sender: FDA-Public Use
  Company Number: US-INCYTE CORPORATION-2022IN009959

PATIENT

DRUGS (1)
  1. JAKAFI [Suspect]
     Active Substance: RUXOLITINIB
     Indication: Graft versus host disease
     Dosage: 10 MILLIGRAM, BID (1 TABLET EVERY MORNING AND 1 TABLET EVERY EVENING)
     Route: 048
     Dates: start: 20220914

REACTIONS (1)
  - Death [Fatal]

NARRATIVE: CASE EVENT DATE: 20221013
